FAERS Safety Report 25081386 (Version 14)
Quarter: 2025Q2

REPORT INFORMATION
  Report Type: Spontaneous
  Country: US (occurrence: US)
  Receive Date: 20250316
  Receipt Date: 20250520
  Transmission Date: 20250716
  Serious: Yes (Other)
  Sender: SANOFI AVENTIS
  Company Number: US-SANOFI-02441733

PATIENT
  Age: 26 Year
  Sex: Female
  Weight: 92.98 kg

DRUGS (24)
  1. DUPIXENT [Suspect]
     Active Substance: DUPILUMAB
     Indication: Eosinophilic oesophagitis
     Dosage: 300 MG, QOW
     Route: 058
     Dates: start: 20240301
  2. DUPIXENT [Suspect]
     Active Substance: DUPILUMAB
     Indication: Mast cell activation syndrome
  3. BUSPIRONE HCL [Concomitant]
     Active Substance: BUSPIRONE HYDROCHLORIDE
  4. TIZANIDINE HYDROCHLORIDE [Concomitant]
     Active Substance: TIZANIDINE HYDROCHLORIDE
  5. PROPRANOLOL HYDROCHLORIDE [Concomitant]
     Active Substance: PROPRANOLOL HYDROCHLORIDE
  6. IBUPROFEN [Concomitant]
     Active Substance: IBUPROFEN
  7. COENZYME Q10 [Concomitant]
     Active Substance: DIETARY SUPPLEMENT\UBIDECARENONE
  8. LAMOTRIGINE [Concomitant]
     Active Substance: LAMOTRIGINE
  9. HYDROXYZINE HYDROCHLORIDE [Concomitant]
     Active Substance: HYDROXYZINE HYDROCHLORIDE
  10. CABERGOLINE [Concomitant]
     Active Substance: CABERGOLINE
  11. MAGNESIUM [Concomitant]
     Active Substance: MAGNESIUM
  12. ZYRTEC-D [Concomitant]
     Active Substance: CETIRIZINE HYDROCHLORIDE\PSEUDOEPHEDRINE HYDROCHLORIDE
  13. MIDODRINE HYDROCHLORIDE [Concomitant]
     Active Substance: MIDODRINE HYDROCHLORIDE
  14. VITAMIN D3 [Concomitant]
     Active Substance: CHOLECALCIFEROL
  15. VITAMIN C [Concomitant]
     Active Substance: ASCORBIC ACID
  16. PEPCID [Concomitant]
     Active Substance: FAMOTIDINE
  17. COENZYME Q10 [Concomitant]
     Active Substance: DIETARY SUPPLEMENT\UBIDECARENONE
  18. RABEPRAZOLE SODIUM [Concomitant]
     Active Substance: RABEPRAZOLE SODIUM
  19. CANNABIS SATIVA SUBSP. INDICA TOP [Concomitant]
     Active Substance: CANNABIS SATIVA SUBSP. INDICA TOP
  20. VITAMIN B12 [Concomitant]
     Active Substance: CYANOCOBALAMIN
  21. DIPHENHYDRAMINE HYDROCHLORIDE [Concomitant]
     Active Substance: DIPHENHYDRAMINE HYDROCHLORIDE
  22. ESOMEPRAZOLE MAGNESIUM [Concomitant]
     Active Substance: ESOMEPRAZOLE MAGNESIUM
  23. MODAFINIL [Concomitant]
     Active Substance: MODAFINIL
  24. PROMETHAZINE HYDROCHLORIDE [Concomitant]
     Active Substance: PROMETHAZINE HYDROCHLORIDE

REACTIONS (33)
  - Mast cell activation syndrome [Unknown]
  - Condition aggravated [Unknown]
  - Inflammation [Unknown]
  - Rash [Unknown]
  - Pruritus [Unknown]
  - Product dose omission issue [Unknown]
  - Shock [Unknown]
  - Increased tendency to bruise [Unknown]
  - Feeling hot [Unknown]
  - Injection site haemorrhage [Unknown]
  - Dysphagia [Unknown]
  - Nausea [Unknown]
  - Malaise [Unknown]
  - Vomiting [Unknown]
  - Throat tightness [Unknown]
  - Abdominal pain [Unknown]
  - Rash pruritic [Unknown]
  - Dysphagia [Not Recovered/Not Resolved]
  - Dermatitis [Unknown]
  - Decreased appetite [Unknown]
  - Condition aggravated [Unknown]
  - Injection site vesicles [Recovered/Resolved]
  - Oropharyngeal pain [Unknown]
  - Skin burning sensation [Unknown]
  - Condition aggravated [Unknown]
  - Injection site bruising [Unknown]
  - Eosinophilic oesophagitis [Unknown]
  - Drug ineffective [Unknown]
  - Product use in unapproved indication [Unknown]
  - Product quality issue [Unknown]
  - Poor quality product administered [Unknown]
  - Intercepted product storage error [Unknown]
  - Inappropriate schedule of product administration [Unknown]

NARRATIVE: CASE EVENT DATE: 20240301
